FAERS Safety Report 13176506 (Version 2)
Quarter: 2017Q1

REPORT INFORMATION
  Report Type: Spontaneous
  Country: FI (occurrence: FI)
  Receive Date: 20170201
  Receipt Date: 20170203
  Transmission Date: 20170428
  Serious: Yes (Other)
  Sender: FDA-Public Use
  Company Number: FI-TEVA-732873ISR

PATIENT
  Age: 70 Year
  Sex: Female

DRUGS (3)
  1. CALCICHEW D3 FORTE 500 MG/10 MICROGRAM [Concomitant]
     Route: 048
  2. NIVEL TEHO (FOOD SUPPLEMENT) [Concomitant]
  3. LETROZOL RATIOPHARM 2,5 MG [Suspect]
     Active Substance: LETROZOLE
     Route: 048
     Dates: start: 20160218, end: 20170114

REACTIONS (22)
  - Heart rate irregular [Recovered/Resolved]
  - Cardiac failure [Recovered/Resolved]
  - Insomnia [Recovered/Resolved]
  - Visual impairment [Recovering/Resolving]
  - Visual impairment [Recovered/Resolved]
  - Decreased appetite [Recovered/Resolved]
  - Myalgia [Recovered/Resolved]
  - Night sweats [Unknown]
  - Limb discomfort [Recovered/Resolved]
  - Malaise [Recovered/Resolved]
  - Visual impairment [Recovering/Resolving]
  - Hot flush [Unknown]
  - Tachycardia [Recovered/Resolved]
  - Urinary tract inflammation [Recovered/Resolved]
  - Arthralgia [Recovered/Resolved]
  - Reading disorder [Recovered/Resolved]
  - Depressed mood [Recovered/Resolved]
  - Palpitations [Recovered/Resolved]
  - Hypoxia [Recovered/Resolved]
  - Anaesthesia [Recovered/Resolved]
  - Confusional state [Recovered/Resolved]
  - Eye disorder [Unknown]

NARRATIVE: CASE EVENT DATE: 2016
